FAERS Safety Report 9998986 (Version 3)
Quarter: 2014Q2

REPORT INFORMATION
  Report Type: Spontaneous
  Country: RO (occurrence: RO)
  Receive Date: 20140312
  Receipt Date: 20140508
  Transmission Date: 20141212
  Serious: Yes (Hospitalization)
  Sender: FDA-Public Use
  Company Number: RO-AMGEN-ROUSP2014016508

PATIENT
  Age: 66 Year
  Sex: Female
  Weight: 70 kg

DRUGS (8)
  1. NEULASTA [Suspect]
     Indication: PROPHYLAXIS
     Dosage: UNK UNK, AFTER CHEMO
     Route: 058
     Dates: start: 20140213, end: 20140213
  2. NIVESTIM [Concomitant]
     Dosage: 1 VIAL PER DAY
  3. EPIRUBICIN [Concomitant]
     Indication: BREAST CANCER
     Dosage: 130 MG, 21 DAYS
     Route: 042
     Dates: start: 20140212, end: 20140212
  4. EPIRUBICIN [Concomitant]
     Indication: METASTASES TO BONE
  5. EPIRUBICIN [Concomitant]
     Indication: METASTASES TO LIVER
  6. ENDOXAN                            /00021101/ [Concomitant]
     Indication: BREAST CANCER
     Dosage: 500 MG, 21 DAYS
     Route: 042
     Dates: start: 20140212, end: 20140212
  7. ENDOXAN                            /00021101/ [Concomitant]
     Indication: METASTASES TO BONE
  8. ENDOXAN                            /00021101/ [Concomitant]
     Indication: METASTASES TO LIVER

REACTIONS (4)
  - Neutropenia [Recovered/Resolved]
  - Asthenia [Unknown]
  - Dizziness [Unknown]
  - Decreased appetite [Unknown]
